FAERS Safety Report 6792331-5 (Version None)
Quarter: 2010Q2

REPORT INFORMATION
  Report Type: 
  Country: None (occurrence: None)
  Receive Date: 20100624
  Receipt Date: 20100611
  Transmission Date: 20101027
  Serious: Yes (Hospitalization)
  Sender: FDA-Public Use
  Company Number: SE-GENENTECH-303034

PATIENT
  Age: 40 Year
  Sex: Female

DRUGS (2)
  1. MABTHERA [Suspect]
     Indication: RHEUMATOID ARTHRITIS
     Dosage: 1 G, UNK
     Route: 042
     Dates: start: 20090929
  2. IPREN [Concomitant]
     Indication: UNEVALUABLE EVENT
     Dosage: UNK
     Route: 065

REACTIONS (1)
  - HEARING IMPAIRED [None]
